FAERS Safety Report 7901808-8 (Version None)
Quarter: 2011Q4

REPORT INFORMATION
  Report Type: 
  Country: None (occurrence: None)
  Receive Date: 20111108
  Receipt Date: 20111031
  Transmission Date: 20120403
  Serious: Yes (Other)
  Sender: FDA-Public Use
  Company Number: PHFR2011GB04380

PATIENT
  Sex: Male
  Weight: 92 kg

DRUGS (4)
  1. ARIPIPRAZOLE [Concomitant]
     Indication: SCHIZOPHRENIA
     Dosage: 15 MG/DAY
     Route: 048
     Dates: start: 20110318
  2. CLOPIXOL DEPOT [Concomitant]
     Dosage: 600 MG/DAY
     Route: 030
     Dates: start: 20101101, end: 20110707
  3. CLOZARIL [Suspect]
     Indication: SCHIZOPHRENIA, PARANOID TYPE
     Dosage: 50 MG, BID
     Route: 048
     Dates: start: 20110715
  4. VALPROATE SODIUM [Concomitant]
     Indication: ELEVATED MOOD
     Dosage: 1.2 G/DY
     Route: 048
     Dates: start: 20101101

REACTIONS (3)
  - PAROTITIS [None]
  - SUBMANDIBULAR MASS [None]
  - LOCAL SWELLING [None]
